FAERS Safety Report 13408134 (Version 1)
Quarter: 2017Q2

REPORT INFORMATION
  Report Type: Report from Study
  Country: FR (occurrence: FR)
  Receive Date: 20170406
  Receipt Date: 20170406
  Transmission Date: 20170830
  Serious: Yes (Hospitalization)
  Sender: FDA-Public Use
  Company Number: FR-AMGEN-FRASP2017004122

PATIENT
  Age: 53 Year
  Sex: Female
  Weight: 63 kg

DRUGS (3)
  1. CARFILZOMIB [Suspect]
     Active Substance: CARFILZOMIB
     Indication: PLASMA CELL MYELOMA
     Dosage: 32 MG, CYCLE ONE OF DAY ONE AND TWO
     Route: 042
     Dates: start: 20161026, end: 20161027
  2. CARFILZOMIB [Suspect]
     Active Substance: CARFILZOMIB
     Dosage: 92 MG, CYCLE ONE OF DAY EIGHT AND NINE
     Route: 042
     Dates: start: 20161105, end: 20161106
  3. DEXAMETHASONE. [Concomitant]
     Active Substance: DEXAMETHASONE
     Dosage: 10 MG, UNK
     Dates: start: 20161026, end: 20161109

REACTIONS (3)
  - Renal failure [Recovering/Resolving]
  - Hypertrophic osteoarthropathy [Recovering/Resolving]
  - Cardiotoxicity [Recovering/Resolving]

NARRATIVE: CASE EVENT DATE: 2016
